FAERS Safety Report 17910571 (Version 1)
Quarter: 2020Q2

REPORT INFORMATION
  Report Type: Spontaneous
  Country: US (occurrence: US)
  Receive Date: 20200617
  Receipt Date: 20200617
  Transmission Date: 20200714
  Serious: No
  Sender: FDA-Public Use
  Company Number: None

PATIENT
  Age: 51 Year
  Sex: Female

DRUGS (1)
  1. METHOTREXATE INJ 25MG/ML 2ML SDV [Suspect]
     Active Substance: METHOTREXATE
     Dosage: ?          OTHER
     Route: 058
     Dates: start: 201709

REACTIONS (2)
  - Rheumatoid arthritis [None]
  - Therapeutic product effect decreased [None]

NARRATIVE: CASE EVENT DATE: 20200601
